FAERS Safety Report 14300621 (Version 3)
Quarter: 2018Q1

REPORT INFORMATION
  Report Type: Report from Study
  Country: BR (occurrence: BR)
  Receive Date: 20171219
  Receipt Date: 20180117
  Transmission Date: 20180509
  Serious: No
  Sender: FDA-Public Use
  Company Number: BR-ROCHE-2040950

PATIENT
  Age: 57 Year
  Sex: Male
  Weight: 140 kg

DRUGS (4)
  1. VEMURAFENIB. [Suspect]
     Active Substance: VEMURAFENIB
     Indication: MALIGNANT MELANOMA
     Dosage: MOST RECENT DOSE (8 TABLETS) ON 02/NOV/2017
     Route: 048
     Dates: start: 20171021
  2. NIMESULIDE [Concomitant]
     Active Substance: NIMESULIDE
     Indication: TOOTHACHE
     Route: 048
     Dates: start: 20171018, end: 20171019
  3. PLACEBO [Suspect]
     Active Substance: UNSPECIFIED INGREDIENT
     Indication: MALIGNANT MELANOMA
     Route: 042
  4. COBIMETINIB. [Suspect]
     Active Substance: COBIMETINIB
     Indication: MALIGNANT MELANOMA
     Dosage: THREE, 20 MG TABLETS?MOST RECENT DOSE ON 02/NOV/2017
     Route: 048
     Dates: start: 20171021

REACTIONS (1)
  - Blood creatine phosphokinase increased [Recovering/Resolving]

NARRATIVE: CASE EVENT DATE: 20171103
